FAERS Safety Report 19466311 (Version 2)
Quarter: 2021Q2

REPORT INFORMATION
  Report Type: Report from Study
  Country: None (occurrence: CO)
  Receive Date: 20210627
  Receipt Date: 20210630
  Transmission Date: 20210717
  Serious: Yes (Death, Other)
  Sender: FDA-Public Use
  Company Number: CO-ABBVIE-21K-036-3967808-00

PATIENT
  Age: 84 Year
  Sex: Male
  Weight: 87 kg

DRUGS (2)
  1. ZEMPLAR [Suspect]
     Active Substance: PARICALCITOL
     Indication: CHRONIC KIDNEY DISEASE
     Dosage: POSTDYALISIS
     Route: 042
     Dates: start: 20200623, end: 20210402
  2. ZEMPLAR [Suspect]
     Active Substance: PARICALCITOL
     Indication: HYPERPARATHYROIDISM SECONDARY

REACTIONS (2)
  - Cardiac disorder [Not Recovered/Not Resolved]
  - Death [Fatal]

NARRATIVE: CASE EVENT DATE: 20210620
